FAERS Safety Report 5235378-2 (Version None)
Quarter: 2007Q1

REPORT INFORMATION
  Report Type: 
  Country: None (occurrence: None)
  Receive Date: 20070208
  Receipt Date: 20070208
  Transmission Date: 20070707
  Serious: Yes (Death, Life-Threatening, Hospitalization)
  Sender: FDA-Public Use
  Company Number: None

PATIENT
  Age: 72 Year
  Sex: Male
  Weight: 80 kg

DRUGS (9)
  1. ARGATROBAN [Suspect]
     Indication: AORTIC THROMBOSIS
     Dosage: IV DRIP
     Route: 041
     Dates: start: 20050614, end: 20050615
  2. ARGATROBAN [Suspect]
     Indication: HEPARIN-INDUCED THROMBOCYTOPENIA
     Dosage: IV DRIP
     Route: 041
     Dates: start: 20050614, end: 20050615
  3. LACTULOSE [Concomitant]
  4. REGLAN [Concomitant]
  5. CALCIUM CARBONATE [Concomitant]
  6. DOCUSATE [Concomitant]
  7. CALCIUM GLUCONATE [Concomitant]
  8. LEVOPHED [Concomitant]
  9. PANTOPRAZOLE SODIUM [Concomitant]

REACTIONS (2)
  - DEPRESSED LEVEL OF CONSCIOUSNESS [None]
  - SUBDURAL HAEMATOMA [None]
